FAERS Safety Report 8157952-6 (Version None)
Quarter: 2012Q1

REPORT INFORMATION
  Report Type: 
  Country: None (occurrence: None)
  Receive Date: 20120222
  Receipt Date: 20120213
  Transmission Date: 20120608
  Serious: Yes (Other)
  Sender: FDA-Public Use
  Company Number: PHHY2012CA013358

PATIENT
  Sex: Male
  Weight: 80 kg

DRUGS (1)
  1. ALISKIREN [Suspect]
     Dosage: 150 MG, UNK

REACTIONS (2)
  - GLYCOSYLATED HAEMOGLOBIN INCREASED [None]
  - URINE ALBUMIN/CREATININE RATIO INCREASED [None]
